FAERS Safety Report 11301983 (Version 1)
Quarter: 2015Q3

REPORT INFORMATION
  Report Type: Spontaneous
  Country: US (occurrence: None)
  Receive Date: 20150723
  Receipt Date: 20150723
  Transmission Date: 20151125
  Serious: Yes (Hospitalization, Disabling)
  Sender: FDA-Public Use
  Company Number: None

PATIENT
  Age: 61 Year
  Sex: Male
  Weight: 88 kg

DRUGS (14)
  1. OXYBUTYNIN [Suspect]
     Active Substance: OXYBUTYNIN
     Indication: NOCTURIA
     Dosage: 1 PILL BEDTIME MOUTH
     Route: 048
     Dates: start: 20141230, end: 201503
  2. OXYBUTYNIN [Concomitant]
     Active Substance: OXYBUTYNIN
  3. TYLENOL [Concomitant]
     Active Substance: ACETAMINOPHEN
  4. ALLEGRA [Concomitant]
     Active Substance: FEXOFENADINE HYDROCHLORIDE
  5. ALPRAZOLAM. [Concomitant]
     Active Substance: ALPRAZOLAM
  6. TAZTIA XT [Concomitant]
     Active Substance: DILTIAZEM HYDROCHLORIDE
  7. OXYBUTYNIN [Suspect]
     Active Substance: OXYBUTYNIN
     Indication: POLLAKIURIA
     Dosage: 1 PILL BEDTIME MOUTH
     Route: 048
     Dates: start: 20141230, end: 201503
  8. POTASSIUM [Concomitant]
     Active Substance: POTASSIUM
  9. LOSARTAN. [Concomitant]
     Active Substance: LOSARTAN
  10. NEXIUM [Concomitant]
     Active Substance: ESOMEPRAZOLE MAGNESIUM
  11. IBUPROFEN. [Concomitant]
     Active Substance: IBUPROFEN
  12. NASACORT AQ [Concomitant]
     Active Substance: TRIAMCINOLONE ACETONIDE
  13. EPITOL [Concomitant]
     Active Substance: CARBAMAZEPINE
  14. TERAZOSIN [Concomitant]
     Active Substance: TERAZOSIN\TERAZOSIN HYDROCHLORIDE

REACTIONS (26)
  - Vision blurred [None]
  - Feeling abnormal [None]
  - Impaired self-care [None]
  - Urinary incontinence [None]
  - Masked facies [None]
  - Fear [None]
  - Confusional state [None]
  - Insomnia [None]
  - Faecal incontinence [None]
  - Activities of daily living impaired [None]
  - Dependent personality disorder [None]
  - Paranoia [None]
  - Dysgeusia [None]
  - Fatigue [None]
  - Hypophagia [None]
  - Visual impairment [None]
  - Restlessness [None]
  - Speech disorder [None]
  - Staring [None]
  - Cognitive disorder [None]
  - Dysgraphia [None]
  - Anxiety [None]
  - Photopsia [None]
  - Impaired driving ability [None]
  - Weight decreased [None]
  - Refusal of treatment by patient [None]

NARRATIVE: CASE EVENT DATE: 201501
